FAERS Safety Report 23381045 (Version 1)
Quarter: 2024Q1

REPORT INFORMATION
  Report Type: Spontaneous
  Country: US (occurrence: US)
  Receive Date: 20240109
  Receipt Date: 20240109
  Transmission Date: 20240410
  Serious: Yes (Other)
  Sender: FDA-Public Use
  Company Number: US-TAKEDA-2024TUS002028

PATIENT
  Age: 50 Year
  Sex: Male

DRUGS (1)
  1. TRINTELLIX [Suspect]
     Active Substance: VORTIOXETINE HYDROBROMIDE
     Indication: Major depression
     Dosage: UNK
     Route: 065

REACTIONS (19)
  - Hyperprolactinaemia [Unknown]
  - Depressed mood [Unknown]
  - Insomnia [Unknown]
  - Negative thoughts [Unknown]
  - Anxiety [Unknown]
  - Distractibility [Unknown]
  - Restlessness [Unknown]
  - Energy increased [Unknown]
  - Akathisia [Unknown]
  - Extrapyramidal disorder [Unknown]
  - Weight decreased [Unknown]
  - Hyperlipidaemia [Unknown]
  - Hyperglycaemia [Unknown]
  - Sedation [Unknown]
  - Irritability [Unknown]
  - Sexual dysfunction [Unknown]
  - Weight increased [Unknown]
  - Nausea [Unknown]
  - Vomiting [Unknown]
